FAERS Safety Report 12645240 (Version 4)
Quarter: 2018Q3

REPORT INFORMATION
  Report Type: Report from Study
  Country: PL (occurrence: PL)
  Receive Date: 20160811
  Receipt Date: 20180801
  Transmission Date: 20181010
  Serious: Yes (Hospitalization)
  Sender: FDA-Public Use
  Company Number: PL-TAKEDA-2016TUS013830

PATIENT
  Age: 52 Year
  Sex: Male
  Weight: 93 kg

DRUGS (6)
  1. RANLOC                             /01263204/ [Concomitant]
     Indication: HYPERCHLORHYDRIA
     Dosage: 20 MG, QD
     Route: 048
     Dates: start: 2014, end: 20160731
  2. CLINDAMYCIN. [Concomitant]
     Active Substance: CLINDAMYCIN
     Indication: INFECTION PROPHYLAXIS
     Dosage: 600 MG, BID
     Route: 048
     Dates: start: 20160701, end: 20160707
  3. ADALIMUMAB [Suspect]
     Active Substance: ADALIMUMAB
     Indication: COLITIS ULCERATIVE
     Dosage: 40 MG, UNK
     Route: 065
     Dates: start: 20160505, end: 20160727
  4. SALOFALK                           /00000301/ [Concomitant]
     Active Substance: MESALAMINE
     Dosage: 500 MG, UNK
     Route: 048
     Dates: start: 20160517, end: 20160731
  5. ALTABACTIN [Concomitant]
     Dosage: 5 MG, UNK
     Route: 061
     Dates: start: 20160701, end: 20160707
  6. SALOFALK                           /00000301/ [Concomitant]
     Active Substance: MESALAMINE
     Indication: COLITIS ULCERATIVE
     Dosage: 500 MG, UNK
     Route: 048
     Dates: start: 201603, end: 20160505

REACTIONS (1)
  - Colitis ulcerative [Recovered/Resolved]

NARRATIVE: CASE EVENT DATE: 20160731
